FAERS Safety Report 17798242 (Version 2)
Quarter: 2020Q2

REPORT INFORMATION
  Report Type: Spontaneous
  Country: PT (occurrence: PT)
  Receive Date: 20200518
  Receipt Date: 20200603
  Transmission Date: 20200714
  Serious: Yes (Other)
  Sender: FDA-Public Use
  Company Number: PT-ACCORD-182314

PATIENT
  Age: 14 Year
  Sex: Female

DRUGS (4)
  1. MONTELUKAST [Suspect]
     Active Substance: MONTELUKAST SODIUM
     Indication: COLD URTICARIA
     Dosage: 10 MILLIGRAM
     Route: 048
  2. DESLORATADINE. [Suspect]
     Active Substance: DESLORATADINE
     Indication: COLD URTICARIA
     Dosage: 5 MILLIGRAM, QD
     Route: 048
  3. DESLORATADINE. [Suspect]
     Active Substance: DESLORATADINE
     Indication: COLD URTICARIA
     Dosage: 20 MILLIGRAM
     Route: 048
  4. EPINEPHRINE. [Concomitant]
     Active Substance: EPINEPHRINE
     Indication: COLD URTICARIA
     Route: 065

REACTIONS (3)
  - Off label use [Unknown]
  - Drug ineffective [Unknown]
  - Condition aggravated [Unknown]
